FAERS Safety Report 4375743-9 (Version None)
Quarter: 2004Q2

REPORT INFORMATION
  Report Type: 
  Country: None (occurrence: None)
  Receive Date: 20040608
  Receipt Date: 20030307
  Transmission Date: 20050107
  Serious: Yes (Life-Threatening, Other)
  Sender: FDA-Public Use
  Company Number: 200310807BCC

PATIENT
  Age: 44 Year
  Sex: Female
  Weight: 58.9676 kg

DRUGS (4)
  1. ALEVE [Suspect]
     Indication: PAIN
     Dosage: 440 MG, ONCE, ORAL
     Route: 048
     Dates: start: 20030303
  2. ALEVE [Suspect]
     Indication: PHARYNGOLARYNGEAL PAIN
     Dosage: 440 MG, ONCE, ORAL
     Route: 048
     Dates: start: 20030303
  3. PREDNISONE [Concomitant]
  4. IV STEROIDS [Concomitant]

REACTIONS (4)
  - ANAPHYLACTOID REACTION [None]
  - DYSPNOEA [None]
  - OROPHARYNGEAL SWELLING [None]
  - THROAT TIGHTNESS [None]
